FAERS Safety Report 5215757-X (Version None)
Quarter: 2007Q1

REPORT INFORMATION
  Report Type: 
  Country: None (occurrence: None)
  Receive Date: 20070118
  Receipt Date: 20070111
  Transmission Date: 20070707
  Serious: Yes (Death, Hospitalization)
  Sender: FDA-Public Use
  Company Number: 163-C5013-06100367

PATIENT
  Age: 62 Year
  Sex: Male
  Weight: 99.7 kg

DRUGS (5)
  1. CC-5013 (LENALIDOMIDE) (CAPSULES) [Suspect]
     Indication: DIFFUSE LARGE B-CELL LYMPHOMA
     Dosage: 25 MG, 1 IN 1 D, ORAL
     Route: 048
     Dates: start: 20060907, end: 20060927
  2. IBUPROFEN [Concomitant]
  3. PROTONIX [Concomitant]
  4. MULTIVITAMIN [Concomitant]
  5. SENOKOT-S (SENOKOT-S) (TABLETS) [Concomitant]

REACTIONS (6)
  - DIFFUSE LARGE B-CELL LYMPHOMA [None]
  - DISEASE PROGRESSION [None]
  - JUGULAR VEIN THROMBOSIS [None]
  - LUNG NEOPLASM [None]
  - LYMPH NODE CALCIFICATION [None]
  - PULMONARY GRANULOMA [None]
